FAERS Safety Report 8250217-3 (Version None)
Quarter: 2012Q2

REPORT INFORMATION
  Report Type: 
  Country: None (occurrence: None)
  Receive Date: 20120402
  Receipt Date: 20120328
  Transmission Date: 20120825
  Serious: Yes (Hospitalization)
  Sender: FDA-Public Use
  Company Number: US-JNJFOC-20120310924

PATIENT
  Age: 65 Year
  Sex: Female

DRUGS (3)
  1. ANCEF [Concomitant]
     Indication: PREMEDICATION
  2. XARELTO [Suspect]
     Indication: THROMBOSIS PROPHYLAXIS
     Route: 048
  3. XARELTO [Suspect]
     Route: 048

REACTIONS (1)
  - POST PROCEDURAL HAEMORRHAGE [None]
